FAERS Safety Report 11785336 (Version 2)
Quarter: 2015Q4

REPORT INFORMATION
  Report Type: Report from Study
  Country: AR (occurrence: AR)
  Receive Date: 20151130
  Receipt Date: 20151214
  Transmission Date: 20160305
  Serious: Yes (Death, Hospitalization)
  Sender: FDA-Public Use
  Company Number: PHHY2015AR155659

PATIENT
  Sex: Male

DRUGS (1)
  1. SEEBRI BREEZHALER [Suspect]
     Active Substance: GLYCOPYRROLATE
     Indication: CHRONIC OBSTRUCTIVE PULMONARY DISEASE
     Dosage: UNK
     Route: 065
     Dates: start: 201510

REACTIONS (6)
  - Loss of consciousness [Fatal]
  - Dyspnoea [Fatal]
  - Chronic obstructive pulmonary disease [Fatal]
  - Lung disorder [Fatal]
  - Disease progression [Fatal]
  - Respiratory disorder [Fatal]
